FAERS Safety Report 5037264-X (Version None)
Quarter: 2006Q2

REPORT INFORMATION
  Report Type: 
  Country: None (occurrence: None)
  Receive Date: 20060628
  Receipt Date: 20060619
  Transmission Date: 20061013
  Serious: Yes (Hospitalization)
  Sender: FDA-Public Use
  Company Number: CH-ROCHE-452232

PATIENT
  Age: 56 Year
  Sex: Male

DRUGS (3)
  1. XELODA [Suspect]
     Route: 048
     Dates: start: 20060615, end: 20060615
  2. ELOXATIN [Concomitant]
     Indication: COLON CANCER
     Dates: start: 20060615, end: 20060615
  3. DAFALGAN [Concomitant]
     Route: 048
     Dates: start: 20060615, end: 20060615

REACTIONS (1)
  - PANCREATITIS [None]
